FAERS Safety Report 8256007-X (Version None)
Quarter: 2012Q2

REPORT INFORMATION
  Report Type: 
  Country: None (occurrence: None)
  Receive Date: 20120403
  Receipt Date: 20120320
  Transmission Date: 20120825
  Serious: Yes (Hospitalization)
  Sender: FDA-Public Use
  Company Number: US-ROCHE-1051840

PATIENT
  Sex: Male
  Weight: 68 kg

DRUGS (10)
  1. VICODIN [Concomitant]
     Dosage: TOTAL DAILY DOSE: 500/50 UNITS NOT PROVIDED
  2. ZANTAC [Concomitant]
  3. ACETAMINOPHEN [Concomitant]
  4. KEPPRA [Concomitant]
  5. OMEPRAZOLE [Concomitant]
     Dates: start: 20120208
  6. VEMURAFENIB [Suspect]
     Indication: MALIGNANT MELANOMA
     Dosage: LAST DOSE PRIOR TO SAE ON 14/MAR/2012
     Route: 048
     Dates: start: 20120208
  7. LISINOPRIL [Concomitant]
  8. OMEPRAZOLE [Concomitant]
     Dates: start: 20120202, end: 20120208
  9. LEVOFLOXACIN [Concomitant]
     Dates: start: 20120314
  10. DECADRON [Concomitant]
     Dates: start: 20120202

REACTIONS (1)
  - BRAIN ABSCESS [None]
